FAERS Safety Report 10755113 (Version 1)
Quarter: 2015Q1

REPORT INFORMATION
  Report Type: Spontaneous
  Country: US (occurrence: None)
  Receive Date: 20150123
  Receipt Date: 20150123
  Transmission Date: 20150721
  Serious: Yes (Hospitalization)
  Sender: FDA-Public Use
  Company Number: TAP2009Q00071

PATIENT

DRUGS (1)
  1. PREVACID SOLUTAB [Suspect]
     Active Substance: LANSOPRAZOLE
     Indication: HYPERCHLORHYDRIA
     Route: 048

REACTIONS (2)
  - Oesophageal pain [None]
  - Pain [None]

NARRATIVE: CASE EVENT DATE: 20090110
